FAERS Safety Report 12431681 (Version 1)
Quarter: 2016Q2

REPORT INFORMATION
  Report Type: Spontaneous
  Country: US (occurrence: None)
  Receive Date: 20160602
  Receipt Date: 20160602
  Transmission Date: 20160815
  Serious: Yes (Other)
  Sender: FDA-Public Use
  Company Number: None

PATIENT
  Age: 21 Year
  Sex: Female
  Weight: 53.52 kg

DRUGS (3)
  1. IUD (SKYLA) [Concomitant]
  2. MIRENA [Suspect]
     Active Substance: LEVONORGESTREL
     Dates: start: 20160104
  3. DAILY MULTIVITAMIN [Concomitant]
     Active Substance: VITAMINS

REACTIONS (3)
  - Device physical property issue [None]
  - Complication of device insertion [None]
  - Economic problem [None]

NARRATIVE: CASE EVENT DATE: 20160104
